FAERS Safety Report 12942149 (Version 3)
Quarter: 2016Q4

REPORT INFORMATION
  Report Type: Report from Study
  Country: US (occurrence: US)
  Receive Date: 20161115
  Receipt Date: 20161208
  Transmission Date: 20170207
  Serious: Yes (Hospitalization, Other)
  Sender: FDA-Public Use
  Company Number: US-BAYER-2015-000550

PATIENT
  Age: 40 Year
  Sex: Female
  Weight: 99.77 kg

DRUGS (15)
  1. ADEMPAS [Suspect]
     Active Substance: RIOCIGUAT
     Indication: PULMONARY HYPERTENSION
     Dosage: 2.5 MG, TID
     Route: 048
  2. ADEMPAS [Suspect]
     Active Substance: RIOCIGUAT
     Indication: PULMONARY HYPERTENSION
     Dosage: 2.5 MG, TID
     Route: 048
  3. ADEMPAS [Suspect]
     Active Substance: RIOCIGUAT
     Indication: PULMONARY HYPERTENSION
     Dosage: 2.5 MG, TID
     Route: 048
  4. PREDNISONE. [Concomitant]
     Active Substance: PREDNISONE
     Dosage: UNK
  5. TRACLEER [Concomitant]
     Active Substance: BOSENTAN
     Dosage: UNK
  6. REVATIO [Concomitant]
     Active Substance: SILDENAFIL CITRATE
     Dosage: UNK
  7. ADEMPAS [Suspect]
     Active Substance: RIOCIGUAT
     Indication: PULMONARY HYPERTENSION
     Dosage: 1 MG, TID
     Route: 048
  8. COUMADIN [Concomitant]
     Active Substance: WARFARIN SODIUM
     Dosage: UNK
  9. ADEMPAS [Suspect]
     Active Substance: RIOCIGUAT
     Indication: PULMONARY HYPERTENSION
     Dosage: 0.5 MG, TID
     Route: 048
     Dates: start: 20141114
  10. ADEMPAS [Suspect]
     Active Substance: RIOCIGUAT
     Indication: PULMONARY HYPERTENSION
     Dosage: 2 MG, TID
     Route: 048
  11. ADEMPAS [Suspect]
     Active Substance: RIOCIGUAT
     Indication: PULMONARY HYPERTENSION
     Dosage: 2.5 MG, TID
     Route: 048
  12. OPSUMIT [Concomitant]
     Active Substance: MACITENTAN
     Dosage: UNK
  13. RIFAMPIN. [Suspect]
     Active Substance: RIFAMPIN
     Dosage: UNK
  14. ADEMPAS [Suspect]
     Active Substance: RIOCIGUAT
     Indication: PULMONARY HYPERTENSION
     Dosage: UNK
     Route: 048
     Dates: start: 20160628
  15. ADEMPAS [Suspect]
     Active Substance: RIOCIGUAT
     Indication: PULMONARY HYPERTENSION
     Dosage: 2.5 MG, TID
     Route: 048

REACTIONS (47)
  - Palpitations [None]
  - Cellulitis [Not Recovered/Not Resolved]
  - Loss of consciousness [None]
  - Fluid retention [None]
  - Anticoagulation drug level below therapeutic [None]
  - Psychomotor hyperactivity [None]
  - Pneumonia [Unknown]
  - Pulmonary pain [None]
  - Joint swelling [None]
  - Fall [None]
  - Cardiac failure [None]
  - Hospitalisation [Unknown]
  - Memory impairment [None]
  - Confusional state [None]
  - Diarrhoea [None]
  - Nausea [Unknown]
  - Fatigue [None]
  - International normalised ratio increased [Unknown]
  - Respiratory arrest [None]
  - Blood potassium decreased [Unknown]
  - Faeces discoloured [None]
  - Blood potassium decreased [None]
  - Swelling [Unknown]
  - Cardiac failure chronic [None]
  - Dyspnoea exertional [Unknown]
  - Feeling abnormal [None]
  - Dyspnoea [None]
  - Blood potassium decreased [Unknown]
  - Chromaturia [None]
  - Treatment noncompliance [None]
  - Amnesia [Unknown]
  - Peripheral swelling [None]
  - Wound infection [None]
  - Amnesia [None]
  - Pneumonia [None]
  - Therapy cessation [None]
  - Pyrexia [Unknown]
  - Pneumonia [None]
  - Oral surgery [None]
  - Limb injury [None]
  - Rheumatoid arthritis [Unknown]
  - Presyncope [None]
  - Product use issue [Unknown]
  - Vomiting [Unknown]
  - Cough [Unknown]
  - Malaise [Unknown]
  - Product use issue [Unknown]

NARRATIVE: CASE EVENT DATE: 201506
